FAERS Safety Report 5898387-6 (Version None)
Quarter: 2008Q3

REPORT INFORMATION
  Report Type: 
  Country: None (occurrence: None)
  Receive Date: 20080925
  Receipt Date: 20071012
  Transmission Date: 20090109
  Serious: No
  Sender: FDA-Public Use
  Company Number: A0687551A

PATIENT
  Age: 71 Year
  Sex: Female

DRUGS (4)
  1. WELLBUTRIN XL [Suspect]
     Indication: DRUG USE FOR UNKNOWN INDICATION
     Route: 048
     Dates: start: 20070701
  2. NEXIUM [Concomitant]
  3. SUBOXONE [Concomitant]
  4. MULTI-VITAMIN [Concomitant]

REACTIONS (1)
  - AMPHETAMINES POSITIVE [None]
